FAERS Safety Report 6930816-9 (Version None)
Quarter: 2010Q3

REPORT INFORMATION
  Report Type: 
  Country: None (occurrence: None)
  Receive Date: 20100813
  Receipt Date: 20100805
  Transmission Date: 20110219
  Serious: Yes (Hospitalization)
  Sender: FDA-Public Use
  Company Number: 7007920

PATIENT
  Age: 54 Year
  Sex: Female

DRUGS (7)
  1. REBIF [Suspect]
     Indication: PRODUCT USED FOR UNKNOWN INDICATION
     Dosage: 22 MCG
     Dates: start: 20020101
  2. DICLOFENAC [Concomitant]
  3. ASPIRIN [Concomitant]
  4. SIMVASTATIN [Concomitant]
  5. AMITRIPTYLINE HCL [Concomitant]
  6. GABAPENTIN [Concomitant]
  7. XALATIN EYE DROPS (LATANOPROST) [Concomitant]

REACTIONS (4)
  - HIP ARTHROPLASTY [None]
  - INJECTION SITE ERYTHEMA [None]
  - INJECTION SITE HAEMATOMA [None]
  - INJECTION SITE PRURITUS [None]
